FAERS Safety Report 6938025-4 (Version None)
Quarter: 2010Q3

REPORT INFORMATION
  Report Type: 
  Country: None (occurrence: None)
  Receive Date: 20100824
  Receipt Date: 20100811
  Transmission Date: 20110219
  Serious: Yes (Hospitalization)
  Sender: FDA-Public Use
  Company Number: US-ELI_LILLY_AND_COMPANY-US201006002055

PATIENT
  Sex: Male

DRUGS (29)
  1. FORTEO [Suspect]
     Indication: OSTEOPOROSIS
     Dosage: 20 UG, DAILY (1/D)
     Dates: start: 20090101
  2. VENTOLIN HFA [Concomitant]
     Dosage: 90 UG, AS NEEDED
  3. SYMBICORT [Concomitant]
     Dosage: 5 MG, 2/D
  4. PLAVIX [Concomitant]
     Dosage: 75 MG, DAILY (1/D)
     Route: 048
  5. METFORMIN HCL [Concomitant]
     Dosage: 10000 MG, 2/D
     Route: 048
  6. ASCORBIC ACID [Concomitant]
  7. CRESTOR [Concomitant]
     Dosage: 40 MG, DAILY (1/D)
  8. SINGULAIR [Concomitant]
     Dosage: 10 MG, DAILY (1/D)
     Route: 048
  9. ABILIFY [Concomitant]
     Dosage: 30 MG, DAILY (1/D)
  10. FUROSEMIDE [Concomitant]
     Dosage: 40 MG, QAM + QPM
  11. FUROSEMIDE [Concomitant]
     Dosage: 40 MG, EACH EVENING
  12. FUROSEMIDE [Concomitant]
     Dosage: 80 MG, 2/D
  13. VITAMIN E [Concomitant]
     Dosage: 200 MG, DAILY (1/D)
  14. ASPIRIN [Concomitant]
     Dosage: 81 MG, DAILY (1/D)
  15. DIVALPROEX SODIUM [Concomitant]
     Dosage: 2000 MG, EACH EVENING
     Route: 048
  16. ALTACE [Concomitant]
     Dosage: 10 MG, DAILY (1/D)
  17. TRAZODONE HCL [Concomitant]
     Dosage: 25 MG, AS NEEDED
  18. VITAMIN D [Concomitant]
     Dosage: 2000 MG, DAILY (1/D)
  19. CALCIUM [Concomitant]
     Dosage: 500 MG, DAILY (1/D)
  20. ACETAMINOPHEN AND HYDROCODONE BITARTRATE [Concomitant]
     Dosage: 7.5 MG, AS NEEDED
  21. MULTI-VITAMIN [Concomitant]
     Dosage: UNK, DAILY (1/D)
  22. FISH OIL [Concomitant]
     Dosage: 1200 MG, DAILY (1/D)
  23. RAMIPRIL [Concomitant]
     Dosage: 10 MG, DAILY (1/D)
  24. ZIPRASIDONE HCL [Concomitant]
  25. NAPROXEN [Concomitant]
     Dosage: 500 MG, 2/D
  26. COLACE [Concomitant]
     Dosage: 100 MG, 2/D
  27. SENNA [Concomitant]
     Dosage: UNK, EACH EVENING
  28. ALBUTEROL [Concomitant]
     Dosage: 2.5 MG, AS NEEDED
  29. CLINDAMYCIN [Concomitant]
     Dosage: 150 MG, 3/D
     Route: 048

REACTIONS (1)
  - CHEST PAIN [None]
